FAERS Safety Report 4951208-8 (Version None)
Quarter: 2006Q1

REPORT INFORMATION
  Report Type: 
  Country: None (occurrence: None)
  Receive Date: 20060314
  Receipt Date: 20060307
  Transmission Date: 20060701
  Serious: Yes (Life-Threatening, Hospitalization)
  Sender: FDA-Public Use
  Company Number: 200513000BWH

PATIENT
  Age: 3 Year
  Sex: Female
  Weight: 15.4 kg

DRUGS (6)
  1. TRASYLOL [Suspect]
     Indication: ATRIAL SEPTAL DEFECT REPAIR
     Dosage: 1 ML, ONCE, INTRAVENOUS
     Route: 042
     Dates: start: 20051214
  2. TRASYLOL [Suspect]
     Indication: MITRAL VALVE REPAIR
     Dosage: 1 ML, ONCE, INTRAVENOUS
     Route: 042
     Dates: start: 20051214
  3. TRASYLOL [Suspect]
     Indication: VENTRICULAR SEPTAL DEFECT REPAIR
     Dosage: 1 ML, ONCE, INTRAVENOUS
     Route: 042
     Dates: start: 20051214
  4. ANCEF [Suspect]
     Dosage: INTRAVENOUS
     Route: 042
     Dates: start: 20051214
  5. ENALAPRIL MALEATE [Concomitant]
  6. ANESTHESIA [Concomitant]

REACTIONS (8)
  - ANAPHYLACTIC SHOCK [None]
  - ARTERIAL DISORDER [None]
  - BLOOD PRESSURE DECREASED [None]
  - BLOOD PRESSURE SYSTOLIC DECREASED [None]
  - DRUG HYPERSENSITIVITY [None]
  - PETECHIAE [None]
  - UPPER AIRWAY RESISTANCE SYNDROME [None]
  - URTICARIA [None]
